FAERS Safety Report 9024312 (Version 1)
Quarter: 2013Q1

REPORT INFORMATION
  Report Type: Spontaneous
  Country: NL (occurrence: NL)
  Receive Date: 20130121
  Receipt Date: 20130121
  Transmission Date: 20140127
  Serious: Yes (Other)
  Sender: FDA-Public Use
  Company Number: PHHY2013NL004839

PATIENT
  Sex: Female

DRUGS (2)
  1. ZOMETA [Suspect]
     Indication: BREAST CANCER METASTATIC
     Dosage: 5 MG/100ML, ONCE PER 28 DAYS
     Route: 042
  2. CHEMOTHERAPEUTICS [Suspect]

REACTIONS (1)
  - Thrombosis [Recovering/Resolving]
